FAERS Safety Report 4631861-9 (Version None)
Quarter: 2005Q2

REPORT INFORMATION
  Report Type: 
  Country: None (occurrence: None)
  Receive Date: 20050331
  Receipt Date: 20041217
  Transmission Date: 20051028
  Serious: Yes (Hospitalization)
  Sender: FDA-Public Use
  Company Number: 04P-163-0283998-00

PATIENT
  Age: 50 Year
  Sex: Male

DRUGS (3)
  1. BIAXIN XL [Suspect]
     Indication: UPPER RESPIRATORY TRACT INFECTION
     Dosage: 500 MG, 2 IN 1 D; PER ORAL
     Route: 048
     Dates: start: 20041206, end: 20041209
  2. PSEUDOEPHEDRINE HCL [Concomitant]
  3. ROBITUSSIN AC [Concomitant]

REACTIONS (4)
  - CONFUSIONAL STATE [None]
  - CONVULSION [None]
  - HALLUCINATION [None]
  - INSOMNIA [None]
